FAERS Safety Report 5501332-6 (Version None)
Quarter: 2007Q4

REPORT INFORMATION
  Report Type: 
  Country: None (occurrence: None)
  Receive Date: 20071026
  Receipt Date: 20071018
  Transmission Date: 20080405
  Serious: No
  Sender: FDA-Public Use
  Company Number: TPA2007A02143

PATIENT
  Sex: Male

DRUGS (1)
  1. ROZEREM [Suspect]
     Indication: INITIAL INSOMNIA
     Dosage: 0.5 TAB., 2 IN 1 D QHS, PER ORAL
     Route: 048
     Dates: start: 20070101, end: 20070101

REACTIONS (4)
  - DRUG INEFFECTIVE [None]
  - SOMNOLENCE [None]
  - TREATMENT NONCOMPLIANCE [None]
  - UNDERDOSE [None]
